APPROVED DRUG PRODUCT: FLUOCINONIDE
Active Ingredient: FLUOCINONIDE
Strength: 0.05%
Dosage Form/Route: OINTMENT;TOPICAL
Application: A207680 | Product #001
Applicant: PAI HOLDINGS LLC DBA PHARMACEUTICAL ASSOCIATES INC
Approved: Sep 28, 2018 | RLD: No | RS: No | Type: DISCN